FAERS Safety Report 7012688-X (Version None)
Quarter: 2010Q3

REPORT INFORMATION
  Report Type: 
  Country: None (occurrence: None)
  Receive Date: 20100924
  Receipt Date: 20100916
  Transmission Date: 20110219
  Serious: Yes (Hospitalization)
  Sender: FDA-Public Use
  Company Number: KR-ROCHE-728369

PATIENT
  Sex: Female

DRUGS (12)
  1. TOCILIZUMAB [Suspect]
     Indication: RHEUMATOID ARTHRITIS
     Route: 042
     Dates: start: 20100512, end: 20100830
  2. BLINDED TOCILIZUMAB [Suspect]
     Indication: RHEUMATOID ARTHRITIS
     Route: 042
     Dates: start: 20091125, end: 20100426
  3. METHOTREXATE [Concomitant]
     Route: 048
     Dates: start: 20040909
  4. METHOTREXATE [Concomitant]
     Route: 048
     Dates: start: 20090930
  5. ACECLOFENAC [Concomitant]
     Route: 048
     Dates: start: 20100110
  6. PREDNISONE TAB [Concomitant]
     Route: 048
     Dates: start: 20070411
  7. FOLIC ACID [Concomitant]
     Route: 048
     Dates: start: 20080918
  8. FOSAMAX PLUS D [Concomitant]
     Dosage: ALENDRONIC ACID 70MGAVITAMIN D3 5600IU
     Route: 048
  9. REBAMIPIDE [Concomitant]
     Route: 048
     Dates: start: 20040102
  10. REBAMIPIDE [Concomitant]
     Route: 048
     Dates: start: 20081218
  11. CILNIDIPINE [Concomitant]
     Route: 048
     Dates: start: 20040601
  12. DIOVAN HCT [Concomitant]
     Route: 048
     Dates: start: 20040601

REACTIONS (3)
  - HIP FRACTURE [None]
  - NECROSIS ISCHAEMIC [None]
  - PELVIC FRACTURE [None]
